FAERS Safety Report 7497655-4 (Version None)
Quarter: 2011Q2

REPORT INFORMATION
  Report Type: 
  Country: None (occurrence: None)
  Receive Date: 20110523
  Receipt Date: 20110517
  Transmission Date: 20111010
  Serious: Yes (Life-Threatening, Hospitalization)
  Sender: FDA-Public Use
  Company Number: PHHY2011DK41984

PATIENT
  Sex: Female
  Weight: 74 kg

DRUGS (5)
  1. METHOTREXATE [Suspect]
     Dosage: 10 MG, UNK
     Dates: start: 20110316
  2. PINEX [Concomitant]
     Indication: PAIN
  3. IBUMETIN [Concomitant]
     Indication: PAIN
  4. METHOTREXATE [Suspect]
     Indication: ARTHRITIS
     Dosage: 7.5 MG, UNK
     Route: 048
     Dates: start: 20110302
  5. METHOTREXATE [Suspect]
     Dosage: 7.5 MG, UNK
     Dates: start: 20110309

REACTIONS (2)
  - INFLUENZA LIKE ILLNESS [None]
  - MALIGNANT MELANOMA [None]
